FAERS Safety Report 9536141 (Version 1)
Quarter: 2013Q3

REPORT INFORMATION
  Report Type: Spontaneous
  Country: CH (occurrence: CH)
  Receive Date: 20130919
  Receipt Date: 20130919
  Transmission Date: 20140515
  Serious: Yes (Death, Life-Threatening, Other)
  Sender: FDA-Public Use
  Company Number: CH-ASTRAZENECA-2013SE69754

PATIENT
  Age: 32910 Day
  Sex: Female
  Weight: 70 kg

DRUGS (5)
  1. BRILIQUE [Suspect]
     Indication: ACUTE MYOCARDIAL INFARCTION
     Dosage: 2X1 TABLET LOADING DOSE
     Route: 048
     Dates: start: 20130910, end: 20130910
  2. BRILIQUE [Suspect]
     Indication: ACUTE MYOCARDIAL INFARCTION
     Route: 048
     Dates: start: 20130911
  3. ASPIRINE [Suspect]
     Indication: ACUTE MYOCARDIAL INFARCTION
  4. CLEXANE [Suspect]
     Indication: ACUTE MYOCARDIAL INFARCTION
     Route: 058
     Dates: end: 201309
  5. CLEXANE [Suspect]
     Indication: ACUTE MYOCARDIAL INFARCTION
     Route: 058
     Dates: start: 20130910

REACTIONS (6)
  - Death [Fatal]
  - Malaise [Unknown]
  - Fall [Unknown]
  - Angina pectoris [Unknown]
  - Haemorrhage intracranial [Unknown]
  - Dizziness [Unknown]
